FAERS Safety Report 23024017 (Version 2)
Quarter: 2023Q4

REPORT INFORMATION
  Report Type: Report from Study
  Country: CA (occurrence: CA)
  Receive Date: 20231003
  Receipt Date: 20231009
  Transmission Date: 20240109
  Serious: No
  Sender: FDA-Public Use
  Company Number: CA-BIOGEN-2023BI01180145

PATIENT
  Age: 65 Year
  Sex: Female

DRUGS (4)
  1. TYSABRI [Suspect]
     Active Substance: NATALIZUMAB
     Indication: Multiple sclerosis
     Route: 050
     Dates: start: 20130815, end: 20230303
  2. TYSABRI [Suspect]
     Active Substance: NATALIZUMAB
     Route: 050
     Dates: start: 20230303
  3. TYSABRI [Suspect]
     Active Substance: NATALIZUMAB
     Route: 050
     Dates: start: 20130815
  4. TYSABRI [Suspect]
     Active Substance: NATALIZUMAB
     Route: 050
     Dates: start: 20130815

REACTIONS (8)
  - Prescribed underdose [Not Recovered/Not Resolved]
  - Dental caries [Recovered/Resolved]
  - Mental impairment [Not Recovered/Not Resolved]
  - Aphasia [Not Recovered/Not Resolved]
  - Stomatitis [Recovered/Resolved]
  - Fatigue [Not Recovered/Not Resolved]
  - Poor venous access [Not Recovered/Not Resolved]
  - Headache [Not Recovered/Not Resolved]

NARRATIVE: CASE EVENT DATE: 20221001
